FAERS Safety Report 18417956 (Version 2)
Quarter: 2020Q4

REPORT INFORMATION
  Report Type: Spontaneous
  Country: US (occurrence: US)
  Receive Date: 20201023
  Receipt Date: 20201124
  Transmission Date: 20210114
  Serious: Yes (Other)
  Sender: FDA-Public Use
  Company Number: US-DRREDDYS-USA/USA/20/0128155

PATIENT
  Age: 64 Year
  Sex: Female
  Weight: 74.8 kg

DRUGS (5)
  1. REMODULIN [Concomitant]
     Active Substance: TREPROSTINIL
     Indication: PULMONARY ARTERIAL HYPERTENSION
     Dosage: 0.027 MICROG/KG; 2.5 MG/ML
     Route: 041
     Dates: start: 20200812
  2. REMODULIN [Concomitant]
     Active Substance: TREPROSTINIL
     Dosage: 0.029 MICROG/KG
     Route: 041
     Dates: start: 20200812
  3. REMODULIN [Concomitant]
     Active Substance: TREPROSTINIL
     Route: 041
     Dates: start: 2020
  4. TADALAFIL TABLETS [Suspect]
     Active Substance: TADALAFIL
     Indication: PRODUCT USED FOR UNKNOWN INDICATION
     Route: 048
  5. AMBRISENTAN [Concomitant]
     Active Substance: AMBRISENTAN
     Indication: PRODUCT USED FOR UNKNOWN INDICATION

REACTIONS (14)
  - Eructation [Unknown]
  - Gastrooesophageal reflux disease [Unknown]
  - Pain in extremity [Unknown]
  - Gastric haemorrhage [Unknown]
  - Limb discomfort [Unknown]
  - Hiatus hernia [Unknown]
  - Abdominal discomfort [Unknown]
  - Drug ineffective [Unknown]
  - Myalgia [Unknown]
  - Peripheral swelling [Unknown]
  - Gastric disorder [Unknown]
  - Cardiovascular disorder [Unknown]
  - Product quality issue [Unknown]
  - Diarrhoea [Unknown]

NARRATIVE: CASE EVENT DATE: 2020
